FAERS Safety Report 4840339-9 (Version None)
Quarter: 2005Q4

REPORT INFORMATION
  Report Type: 
  Country: None (occurrence: None)
  Receive Date: 20051025
  Receipt Date: 20050630
  Transmission Date: 20060501
  Serious: Yes (Hospitalization, Other)
  Sender: FDA-Public Use
  Company Number: HQWYE957801JUL05

PATIENT
  Sex: Female

DRUGS (5)
  1. RAPAMUNE [Suspect]
     Indication: RENAL TRANSPLANT
     Dosage: 7 MG 1X PER 1 DAY,ORAL ; 8 MG 1X PER 1 DAY, ORAL
     Route: 048
     Dates: start: 20050322, end: 20050601
  2. RAPAMUNE [Suspect]
     Indication: RENAL TRANSPLANT
     Dosage: 7 MG 1X PER 1 DAY,ORAL ; 8 MG 1X PER 1 DAY, ORAL
     Route: 048
     Dates: start: 20050601, end: 20050601
  3. PROGRAF [Concomitant]
  4. CELLCEPT [Concomitant]
  5. PREDNISONE [Concomitant]

REACTIONS (1)
  - PNEUMONITIS [None]
